FAERS Safety Report 9787327 (Version 1)
Quarter: 2013Q4

REPORT INFORMATION
  Report Type: Spontaneous
  Country: US (occurrence: US)
  Receive Date: 20131230
  Receipt Date: 20131230
  Transmission Date: 20140711
  Serious: Yes (Hospitalization)
  Sender: FDA-Public Use
  Company Number: US-BIOGENIDEC-2013BI122570

PATIENT
  Age: 54 Year
  Sex: Female

DRUGS (1)
  1. AVONEX [Suspect]
     Indication: MULTIPLE SCLEROSIS
     Route: 030
     Dates: start: 20131116, end: 20131210

REACTIONS (3)
  - Compartment syndrome [Recovered/Resolved with Sequelae]
  - Ill-defined disorder [Recovered/Resolved]
  - Drug dose omission [Recovered/Resolved]
